FAERS Safety Report 4541970-0 (Version None)
Quarter: 2004Q4

REPORT INFORMATION
  Report Type: 
  Country: None (occurrence: None)
  Receive Date: 20041227
  Receipt Date: 20041208
  Transmission Date: 20050328
  Serious: Yes (Hospitalization)
  Sender: FDA-Public Use
  Company Number: DSA_25487_2004

PATIENT
  Age: 60 Year
  Sex: Female

DRUGS (1)
  1. CARDIZEM LA [Suspect]
     Indication: HYPERTENSION
     Dosage: 180 MG Q DAY PO
     Route: 048
     Dates: start: 20041001, end: 20041208

REACTIONS (5)
  - BLOOD CHOLESTEROL INCREASED [None]
  - CHEST PAIN [None]
  - DYSPHAGIA [None]
  - DYSPNOEA [None]
  - EMOTIONAL DISTRESS [None]
